FAERS Safety Report 5747738-1 (Version None)
Quarter: 2008Q2

REPORT INFORMATION
  Report Type: 
  Country: None (occurrence: None)
  Receive Date: 20080523
  Receipt Date: 20071026
  Transmission Date: 20081010
  Serious: No
  Sender: FDA-Public Use
  Company Number: US-BAYER-200713084BWH

PATIENT
  Age: 63 Year
  Sex: Female

DRUGS (5)
  1. PRECOSE [Suspect]
     Indication: DIABETES MELLITUS
     Dosage: TOTAL DAILY DOSE: 75 MG  UNIT DOSE: 25 MG
     Route: 048
     Dates: start: 20070807, end: 20070807
  2. GLUCOPHAGE [Concomitant]
     Indication: DIABETES MELLITUS
     Dates: start: 20020101
  3. GLUCOTROL [Concomitant]
     Indication: DIABETES MELLITUS
     Dates: start: 20020101
  4. LISINOPRIL [Concomitant]
  5. VYTORIN [Concomitant]

REACTIONS (5)
  - ABDOMINAL DISTENSION [None]
  - ABDOMINAL PAIN UPPER [None]
  - DIARRHOEA [None]
  - FLATULENCE [None]
  - GASTRIC DISORDER [None]
